FAERS Safety Report 5014849-8 (Version None)
Quarter: 2006Q2

REPORT INFORMATION
  Report Type: 
  Country: None (occurrence: None)
  Receive Date: 20060419
  Receipt Date: 20051103
  Transmission Date: 20061013
  Serious: No
  Sender: FDA-Public Use
  Company Number: 2005-04363

PATIENT
  Age: 79 Year
  Sex: Male

DRUGS (1)
  1. FERRLECIT [Suspect]
     Dosage: SINGLE, INTRAVENOUS
     Route: 042

REACTIONS (3)
  - HYPOTENSION [None]
  - NAUSEA [None]
  - VOMITING [None]
